FAERS Safety Report 14518909 (Version 1)
Quarter: 2018Q1

REPORT INFORMATION
  Report Type: Report from Study
  Country: US (occurrence: US)
  Receive Date: 20180212
  Receipt Date: 20180212
  Transmission Date: 20180509
  Serious: Yes (Other)
  Sender: FDA-Public Use
  Company Number: US-PFIZER INC-2018054756

PATIENT
  Age: 48 Year
  Sex: Female

DRUGS (1)
  1. DAYPRO [Suspect]
     Active Substance: OXAPROZIN
     Dosage: UNK

REACTIONS (4)
  - Shock [Unknown]
  - Loss of consciousness [Unknown]
  - Swollen tongue [Unknown]
  - Pharyngeal oedema [Unknown]
